FAERS Safety Report 7743273-X (Version None)
Quarter: 2011Q3

REPORT INFORMATION
  Report Type: 
  Country: None (occurrence: None)
  Receive Date: 20110912
  Receipt Date: 20110901
  Transmission Date: 20111222
  Serious: Yes (Hospitalization)
  Sender: FDA-Public Use
  Company Number: FR-BAXTER-2011BH025322

PATIENT
  Sex: Male
  Weight: 68 kg

DRUGS (57)
  1. FEIBA [Suspect]
     Indication: FACTOR VIII INHIBITION
     Route: 042
     Dates: start: 20110106, end: 20110106
  2. FEIBA [Suspect]
     Route: 042
     Dates: start: 20110107, end: 20110107
  3. FEIBA [Suspect]
     Route: 042
     Dates: start: 20110108, end: 20110108
  4. FEIBA [Suspect]
     Route: 042
     Dates: start: 20110110, end: 20110110
  5. FEIBA [Suspect]
     Route: 042
     Dates: start: 20110110, end: 20110110
  6. FEIBA [Suspect]
     Route: 042
     Dates: start: 20110121, end: 20110121
  7. FEIBA [Suspect]
     Route: 042
     Dates: start: 20110124, end: 20110124
  8. FEIBA [Suspect]
     Route: 042
     Dates: start: 20110124, end: 20110124
  9. FEIBA [Suspect]
     Route: 042
     Dates: start: 20110131, end: 20110204
  10. FEIBA [Suspect]
     Indication: FACTOR VIII DEFICIENCY
     Route: 042
     Dates: start: 20110106, end: 20110106
  11. FEIBA [Suspect]
     Route: 042
     Dates: start: 20110110, end: 20110110
  12. FEIBA [Suspect]
     Route: 042
     Dates: start: 20110112, end: 20110112
  13. FEIBA [Suspect]
     Route: 042
     Dates: start: 20110114, end: 20110114
  14. FEIBA [Suspect]
     Route: 042
     Dates: start: 20110126, end: 20110126
  15. FEIBA [Suspect]
     Route: 042
     Dates: start: 20110107, end: 20110107
  16. FEIBA [Suspect]
     Route: 042
     Dates: start: 20110114, end: 20110114
  17. FEIBA [Suspect]
     Route: 042
     Dates: start: 20110126, end: 20110126
  18. FEIBA [Suspect]
     Route: 042
     Dates: start: 20110131, end: 20110204
  19. FEIBA [Suspect]
     Indication: PROPHYLAXIS
     Route: 042
     Dates: start: 20110106, end: 20110106
  20. FEIBA [Suspect]
     Route: 042
     Dates: start: 20110107, end: 20110107
  21. FEIBA [Suspect]
     Route: 042
     Dates: start: 20110108, end: 20110108
  22. FEIBA [Suspect]
     Route: 042
     Dates: start: 20110109, end: 20110109
  23. FEIBA [Suspect]
     Route: 042
     Dates: start: 20110112, end: 20110112
  24. FEIBA [Suspect]
     Route: 042
     Dates: start: 20110119, end: 20110119
  25. FEIBA [Suspect]
     Route: 042
     Dates: start: 20110121, end: 20110121
  26. FEIBA [Suspect]
     Route: 042
     Dates: start: 20110131, end: 20110204
  27. FEIBA [Suspect]
     Route: 042
     Dates: start: 20110131, end: 20110204
  28. FEIBA [Suspect]
     Route: 042
     Dates: start: 20110108, end: 20110108
  29. FEIBA [Suspect]
     Route: 042
     Dates: start: 20110117, end: 20110117
  30. FEIBA [Suspect]
     Route: 042
     Dates: start: 20110119, end: 20110119
  31. FEIBA [Suspect]
     Route: 042
     Dates: start: 20110119, end: 20110119
  32. FEIBA [Suspect]
     Route: 042
     Dates: start: 20110121, end: 20110121
  33. FEIBA [Suspect]
     Route: 042
     Dates: start: 20110128, end: 20110128
  34. FEIBA [Suspect]
     Route: 042
     Dates: start: 20110128, end: 20110128
  35. FEIBA [Suspect]
     Route: 042
     Dates: start: 20110128, end: 20110128
  36. FEIBA [Suspect]
     Route: 042
     Dates: start: 20110207, end: 20110218
  37. FEIBA [Suspect]
     Route: 042
     Dates: start: 20110207, end: 20110218
  38. FEIBA [Suspect]
     Route: 042
     Dates: start: 20110107, end: 20110107
  39. FEIBA [Suspect]
     Route: 042
     Dates: start: 20110107, end: 20110107
  40. FEIBA [Suspect]
     Route: 042
     Dates: start: 20110117, end: 20110117
  41. FEIBA [Suspect]
     Route: 042
     Dates: start: 20110124, end: 20110124
  42. FEIBA [Suspect]
     Route: 042
     Dates: start: 20110126, end: 20110126
  43. FEIBA [Suspect]
     Route: 042
     Dates: start: 20110128, end: 20110128
  44. FEIBA [Suspect]
     Route: 042
     Dates: start: 20110131, end: 20110204
  45. FEIBA [Suspect]
     Route: 042
     Dates: start: 20110207, end: 20110218
  46. FEIBA [Suspect]
     Route: 042
     Dates: start: 20110207, end: 20110218
  47. FEIBA [Suspect]
     Route: 042
     Dates: start: 20110207, end: 20110218
  48. FEIBA [Suspect]
     Route: 042
     Dates: start: 20110107, end: 20110107
  49. FEIBA [Suspect]
     Route: 042
     Dates: start: 20110109, end: 20110109
  50. FEIBA [Suspect]
     Route: 042
     Dates: start: 20110109, end: 20110109
  51. FEIBA [Suspect]
     Route: 042
     Dates: start: 20110112, end: 20110112
  52. FEIBA [Suspect]
     Route: 042
     Dates: start: 20110207, end: 20110218
  53. FEIBA [Suspect]
     Route: 042
     Dates: start: 20110114, end: 20110114
  54. FEIBA [Suspect]
     Route: 042
     Dates: start: 20110117, end: 20110117
  55. FEIBA [Suspect]
     Route: 042
     Dates: start: 20110128, end: 20110128
  56. FEIBA [Suspect]
     Route: 042
     Dates: start: 20110128, end: 20110128
  57. FEIBA [Suspect]
     Route: 042
     Dates: start: 20110131, end: 20110204

REACTIONS (1)
  - HAEMARTHROSIS [None]
